FAERS Safety Report 8210604-6 (Version None)
Quarter: 2012Q1

REPORT INFORMATION
  Report Type: 
  Country: None (occurrence: None)
  Receive Date: 20120314
  Receipt Date: 20120305
  Transmission Date: 20120608
  Serious: Yes (Disabling, Other)
  Sender: FDA-Public Use
  Company Number: US-ASTRAZENECA-2012SE15152

PATIENT
  Age: 56 Year
  Sex: Female
  Weight: 68 kg

DRUGS (10)
  1. ZETIA [Suspect]
     Indication: BLOOD CHOLESTEROL INCREASED
     Route: 065
  2. FLEXERIL [Concomitant]
     Indication: DEPRESSION
  3. CELEBREX [Suspect]
     Indication: EHLERS-DANLOS SYNDROME
     Route: 065
  4. CRESTOR [Suspect]
     Indication: BLOOD CHOLESTEROL INCREASED
     Route: 048
  5. PAXIL [Concomitant]
     Indication: DEPRESSION
     Dates: start: 20100101
  6. VITAMIN D [Concomitant]
     Indication: OSTEOPENIA
  7. BUTALBITAL ACETAMINOPHEN CAFFEINE [Concomitant]
     Indication: MIGRAINE
  8. NEXIUM [Suspect]
     Indication: GASTROOESOPHAGEAL REFLUX DISEASE
     Route: 048
  9. LIVALO [Concomitant]
     Indication: BLOOD CHOLESTEROL INCREASED
  10. CLONAZEPAM [Concomitant]
     Indication: ANXIETY

REACTIONS (9)
  - PAIN [None]
  - DEPRESSION [None]
  - ABASIA [None]
  - ANXIETY [None]
  - BLOOD CHOLESTEROL INCREASED [None]
  - MYALGIA [None]
  - MIGRAINE [None]
  - ABDOMINAL DISCOMFORT [None]
  - INTERVERTEBRAL DISC PROTRUSION [None]
